FAERS Safety Report 10334144 (Version 2)
Quarter: 2020Q2

REPORT INFORMATION
  Report Type: Report from Study
  Country: ES (occurrence: ES)
  Receive Date: 20140723
  Receipt Date: 20200402
  Transmission Date: 20200713
  Serious: Yes (Hospitalization)
  Sender: FDA-Public Use
  Company Number: ES-ROCHE-1438941

PATIENT
  Age: 81 Year
  Sex: Male

DRUGS (7)
  1. COLCHIMAX [COLCHICINE;DICYCLOVERINE HYDROCHLORIDE] [Concomitant]
     Active Substance: COLCHICINE\DICYCLOMINE HYDROCHLORIDE
     Indication: PRODUCT USED FOR UNKNOWN INDICATION
  2. LOSARTAN. [Concomitant]
     Active Substance: LOSARTAN
     Indication: HYPERTENSION
  3. SINTROM [Concomitant]
     Active Substance: ACENOCOUMAROL
     Indication: CARDIAC FAILURE
  4. TORASEMIDA [Concomitant]
     Active Substance: TORSEMIDE
     Indication: CARDIAC FAILURE
  5. SEGURIL [Concomitant]
     Active Substance: FUROSEMIDE
     Indication: CARDIAC FAILURE
  6. RANIBIZUMAB. [Suspect]
     Active Substance: RANIBIZUMAB
     Dosage: DOSE : 0.05 CM3
     Route: 031
     Dates: start: 20140505
  7. RANIBIZUMAB. [Suspect]
     Active Substance: RANIBIZUMAB
     Indication: AGE-RELATED MACULAR DEGENERATION
     Dosage: DOSE : 0.05 CM3, MOST RECENT DOSE OF RANIBIZUMAB: 05/MAY/2014.
     Route: 031
     Dates: start: 20140113

REACTIONS (1)
  - Cardiac failure congestive [Recovered/Resolved]

NARRATIVE: CASE EVENT DATE: 20140614
